FAERS Safety Report 16282261 (Version 1)
Quarter: 2019Q2

REPORT INFORMATION
  Report Type: Report from Study
  Country: KE (occurrence: KE)
  Receive Date: 20190507
  Receipt Date: 20190507
  Transmission Date: 20190711
  Serious: Yes (Other)
  Sender: FDA-Public Use
  Company Number: KE-GILEAD-2018-0323328

PATIENT
  Age: 21 Year
  Sex: Female
  Weight: 65 kg

DRUGS (6)
  1. AMOXICLAV [Concomitant]
     Active Substance: AMOXICILLIN\CLAVULANATE POTASSIUM
     Dosage: UNK
  2. EMTRICITABINE/TENOFOVIR DISOPROXIL FUMARATE [Suspect]
     Active Substance: EMTRICITABINE\TENOFOVIR DISOPROXIL FUMARATE
     Indication: PROPHYLAXIS AGAINST HIV INFECTION
     Dosage: UNK
     Route: 048
     Dates: start: 20170214, end: 20171016
  3. FERROUS FUMARATE [Concomitant]
     Active Substance: FERROUS FUMARATE
     Dosage: UNK
  4. NOSIC [Concomitant]
     Dosage: UNK
  5. TETANUS TOXOID [Concomitant]
     Active Substance: TETANUS TOXOIDS
     Dosage: UNK
  6. SULFADOXINE PYRIMETHAMINE [Concomitant]
     Active Substance: PYRIMETHAMINE\SULFADOXINE
     Dosage: UNK

REACTIONS (2)
  - Maternal exposure before pregnancy [Recovered/Resolved]
  - Foetal death [Recovered/Resolved]

NARRATIVE: CASE EVENT DATE: 20171126
